FAERS Safety Report 4366515-X (Version None)
Quarter: 2004Q2

REPORT INFORMATION
  Report Type: 
  Country: None (occurrence: None)
  Receive Date: 20040524
  Receipt Date: 20040519
  Transmission Date: 20050107
  Serious: Yes (Life-Threatening)
  Sender: FDA-Public Use
  Company Number: 200410186BYL

PATIENT
  Age: 76 Year
  Sex: Female

DRUGS (29)
  1. ASPIRIN [Suspect]
     Indication: ANGINA PECTORIS
     Dosage: ORAL
     Route: 048
     Dates: start: 20040318
  2. OMEPRAZOLE [Suspect]
     Dosage: ORAL
     Route: 048
     Dates: start: 20330301, end: 20040318
  3. LASIX [Suspect]
     Dosage: SEE IMAGE
     Route: 041
     Dates: start: 20021101, end: 20040318
  4. LASIX [Suspect]
     Dosage: SEE IMAGE
     Route: 041
     Dates: start: 20040323
  5. CEFAZOLIN SODIUM [Suspect]
     Dosage: 2 G, TOTAL DAILY, INTRAVENOUS DRIP
     Route: 041
     Dates: start: 20040319, end: 20040325
  6. DIOVAN [Concomitant]
  7. MEVALOTIN [Concomitant]
  8. BASEN [Concomitant]
  9. NORVASC /GEC [Concomitant]
  10. MAGNESIUM OXIDE [Concomitant]
  11. ALDACTONE-A [Concomitant]
  12. CEROCRAL [Concomitant]
  13. HEPARIN [Concomitant]
  14. NITOROL [Concomitant]
  15. PERDIPINE [Concomitant]
  16. GASTER [Concomitant]
  17. LEPETAN [Concomitant]
  18. PRIMPERAN INJ [Concomitant]
  19. SILECE [Concomitant]
  20. HALOPERIDOL [Concomitant]
  21. LIDOCAINE [Concomitant]
  22. LASIX [Concomitant]
  23. DOBUTREX [Concomitant]
  24. INOVAN [Concomitant]
  25. NOR-ADRENALIN [Concomitant]
  26. DIPRIVAN [Concomitant]
  27. ADONA [Concomitant]
  28. TRANSAMIN [Concomitant]
  29. MEYLON [Concomitant]

REACTIONS (3)
  - ACUTE MYOCARDIAL INFARCTION [None]
  - ANGINA UNSTABLE [None]
  - TOXIC EPIDERMAL NECROLYSIS [None]
